FAERS Safety Report 17454396 (Version 1)
Quarter: 2020Q1

REPORT INFORMATION
  Report Type: Spontaneous
  Country: CH (occurrence: CH)
  Receive Date: 20200225
  Receipt Date: 20200225
  Transmission Date: 20200409
  Serious: Yes (Other)
  Sender: FDA-Public Use
  Company Number: CH-ROCHE-2553259

PATIENT
  Sex: Male

DRUGS (16)
  1. RITUXIMAB. [Suspect]
     Active Substance: RITUXIMAB
     Indication: DIFFUSE LARGE B-CELL LYMPHOMA
     Route: 065
  2. PREDNISOLONE. [Concomitant]
     Active Substance: PREDNISOLONE
     Indication: DIFFUSE LARGE B-CELL LYMPHOMA
  3. CISPLATIN. [Concomitant]
     Active Substance: CISPLATIN
  4. GAZYVARO [Suspect]
     Active Substance: OBINUTUZUMAB
     Indication: MARGINAL ZONE LYMPHOMA
     Route: 065
  5. CHLORAMBUCIL [Concomitant]
     Active Substance: CHLORAMBUCIL
     Indication: MARGINAL ZONE LYMPHOMA
  6. VINCRISTINE [Concomitant]
     Active Substance: VINCRISTINE
     Indication: DIFFUSE LARGE B-CELL LYMPHOMA
  7. CARBOPLATIN. [Concomitant]
     Active Substance: CARBOPLATIN
     Indication: DIFFUSE LARGE B-CELL LYMPHOMA
  8. ETOPOSIDE. [Concomitant]
     Active Substance: ETOPOSIDE
     Indication: DIFFUSE LARGE B-CELL LYMPHOMA
  9. DEXAMETHASONE. [Concomitant]
     Active Substance: DEXAMETHASONE
     Indication: DIFFUSE LARGE B-CELL LYMPHOMA
  10. BENDAMUSTINE [Concomitant]
     Active Substance: BENDAMUSTINE
     Indication: MARGINAL ZONE LYMPHOMA
  11. CARMUSTINE. [Concomitant]
     Active Substance: CARMUSTINE
  12. RITUXIMAB. [Suspect]
     Active Substance: RITUXIMAB
     Indication: MARGINAL ZONE LYMPHOMA
  13. CYCLOPHOSPHAMIDE. [Concomitant]
     Active Substance: CYCLOPHOSPHAMIDE
     Indication: DIFFUSE LARGE B-CELL LYMPHOMA
  14. DOXORUBICIN [Concomitant]
     Active Substance: DOXORUBICIN
     Indication: DIFFUSE LARGE B-CELL LYMPHOMA
  15. IFOSFAMIDE. [Concomitant]
     Active Substance: IFOSFAMIDE
     Indication: DIFFUSE LARGE B-CELL LYMPHOMA
  16. CYTARABINE. [Concomitant]
     Active Substance: CYTARABINE
     Indication: DIFFUSE LARGE B-CELL LYMPHOMA

REACTIONS (3)
  - Off label use [Unknown]
  - Lymphoma [Unknown]
  - Intentional product use issue [Unknown]
